FAERS Safety Report 7752652-6 (Version None)
Quarter: 2011Q3

REPORT INFORMATION
  Report Type: 
  Country: None (occurrence: None)
  Receive Date: 20110915
  Receipt Date: 20110906
  Transmission Date: 20111222
  Serious: Yes (Hospitalization)
  Sender: FDA-Public Use
  Company Number: US-BAYER-2011-021182

PATIENT
  Age: 19 Year
  Sex: Female
  Weight: 74.83 kg

DRUGS (3)
  1. YASMIN [Suspect]
     Dosage: UNK
     Dates: start: 20090301, end: 20090801
  2. YASMIN [Suspect]
     Indication: PREMENSTRUAL SYNDROME
     Dosage: UNK
     Dates: start: 20060101, end: 20090101
  3. YAZ [Suspect]
     Indication: PREMENSTRUAL SYNDROME
     Dosage: UNK
     Dates: start: 20060101, end: 20090301

REACTIONS (3)
  - CHOLECYSTITIS CHRONIC [None]
  - CHOLELITHIASIS [None]
  - GALLBLADDER INJURY [None]
